FAERS Safety Report 7750824-8 (Version None)
Quarter: 2011Q3

REPORT INFORMATION
  Report Type: 
  Country: None (occurrence: None)
  Receive Date: 20110914
  Receipt Date: 20110912
  Transmission Date: 20111222
  Serious: Yes (Hospitalization)
  Sender: FDA-Public Use
  Company Number: DE-ABBOTT-11P-062-0853727-00

PATIENT
  Sex: Female

DRUGS (3)
  1. CORTISONE ACETATE [Concomitant]
     Indication: RHEUMATOID ARTHRITIS
     Route: 048
  2. HUMIRA [Suspect]
     Indication: RHEUMATOID ARTHRITIS
     Route: 058
     Dates: start: 20100110
  3. ARAVA [Concomitant]
     Indication: RHEUMATOID ARTHRITIS

REACTIONS (7)
  - PNEUMONIA [None]
  - SKIN DISCOLOURATION [None]
  - DRY MOUTH [None]
  - ESCHERICHIA SEPSIS [None]
  - ALOPECIA [None]
  - ABDOMINAL PAIN [None]
  - PYREXIA [None]
